FAERS Safety Report 16184017 (Version 11)
Quarter: 2019Q3

REPORT INFORMATION
  Report Type: Report from Study
  Country: US (occurrence: US)
  Receive Date: 20190411
  Receipt Date: 20190923
  Transmission Date: 20191004
  Serious: Yes (Death, Life-Threatening, Hospitalization, Disabling, Other)
  Sender: FDA-Public Use
  Company Number: US-TESAROUBC-2019-TSO01131-US

PATIENT
  Age: 56 Year
  Sex: Female

DRUGS (36)
  1. PROCHLORPERAZINE. [Concomitant]
     Active Substance: PROCHLORPERAZINE
     Dosage: 10 MG, 1 IN 1 AS REQUIRED
     Route: 048
     Dates: start: 20190205
  2. PARACETAMOL [Concomitant]
     Active Substance: ACETAMINOPHEN
     Dosage: 650 MG, QD
     Route: 048
     Dates: start: 20190307, end: 20190310
  3. POTASSIUM CHLORIDE. [Concomitant]
     Active Substance: POTASSIUM CHLORIDE
     Dosage: 40 UNK QD
     Route: 042
     Dates: start: 20190222, end: 20190222
  4. HYDRALAZINE [Concomitant]
     Active Substance: HYDRALAZINE HYDROCHLORIDE
     Dosage: 10 MG, PRN
     Route: 042
     Dates: start: 20190308, end: 20190309
  5. PREGABALINUM [Concomitant]
     Dosage: 150 MG, 1 IN 1 D
     Route: 048
     Dates: start: 20181022
  6. DIPHENHYDRAMINE. [Concomitant]
     Active Substance: DIPHENHYDRAMINE
     Dosage: 25 MG, 1 IN 1 D
     Route: 048
     Dates: start: 20180221
  7. DOXYCYCLINE. [Concomitant]
     Active Substance: DOXYCYCLINE
     Dosage: 100 MG, BID
     Route: 048
     Dates: start: 20190213
  8. ENOXAPARIN [Concomitant]
     Active Substance: ENOXAPARIN
     Dosage: 40 MG, QD
     Route: 058
     Dates: start: 20190312, end: 20190313
  9. ERTAPENEM. [Concomitant]
     Active Substance: ERTAPENEM SODIUM
     Dosage: 1000 ?G, QD
     Route: 042
     Dates: start: 20190221, end: 20190223
  10. LOSARTAN. [Concomitant]
     Active Substance: LOSARTAN
     Dosage: 25 MG, 1 IN 1 D
     Route: 048
     Dates: start: 20181212
  11. ALBUTEROL                          /00139501/ [Concomitant]
     Active Substance: ALBUTEROL
     Dosage: 2.5 MG, PRN
     Route: 045
     Dates: start: 20190220
  12. IBUPROFEN. [Concomitant]
     Active Substance: IBUPROFEN
     Dosage: 600 MG, QID
     Route: 048
     Dates: start: 20190221
  13. METOPROLOL. [Concomitant]
     Active Substance: METOPROLOL
     Dosage: 100 MG, 1 IN 1 D
     Route: 048
     Dates: start: 20181226
  14. BENADRYL [Concomitant]
     Active Substance: DIPHENHYDRAMINE HYDROCHLORIDE
     Dosage: UNK
     Dates: start: 20190222
  15. LIDEX [Concomitant]
     Active Substance: FLUOCINONIDE
     Dosage: 0.5 %, QD
     Route: 061
     Dates: start: 20190219
  16. MAGNESIUM SULFATE. [Concomitant]
     Active Substance: MAGNESIUM SULFATE
     Dosage: 2 G, QD
     Route: 042
     Dates: start: 20190222, end: 20190222
  17. OXYCODONE W/PARACETAMOL [Concomitant]
     Active Substance: ACETAMINOPHEN\OXYCODONE HYDROCHLORIDE
     Dosage: 330 MG, 1 IN 1 D
     Route: 048
     Dates: start: 20171101
  18. TRAZODONE [Concomitant]
     Active Substance: TRAZODONE HYDROCHLORIDE
     Dosage: 50 MG, 1 IN 1 D
     Route: 048
     Dates: start: 20190205
  19. PEPCID [Concomitant]
     Active Substance: FAMOTIDINE
     Dosage: 20 MG, QD
     Route: 042
     Dates: start: 20190220
  20. MORPHINE [Concomitant]
     Active Substance: MORPHINE
     Dosage: 3 MG, PRN
     Route: 042
     Dates: start: 20190222, end: 20190222
  21. MESALAMINE. [Concomitant]
     Active Substance: MESALAMINE
     Dosage: 1.2 G, BID
     Route: 048
     Dates: start: 20190312, end: 20190313
  22. NIRAPARIB [Suspect]
     Active Substance: NIRAPARIB
     Dosage: DATE OF MOST RECENT DOSE PRIOR TO SAE ONSET:20/FEB/2019   200 MG, 1 IN 1 SEC
     Route: 048
     Dates: start: 20190205, end: 20190220
  23. NIRAPARIB [Suspect]
     Active Substance: NIRAPARIB
     Dosage: UNK
  24. KINEVAC [Concomitant]
     Active Substance: SINCALIDE
     Dosage: 2.1 ?G, QD
     Route: 042
     Dates: start: 20190222, end: 20190222
  25. SUMATRIPTAN. [Concomitant]
     Active Substance: SUMATRIPTAN
     Dosage: 25 MG, QD
     Route: 048
     Dates: start: 20190309, end: 20190309
  26. ONDANSETRON [Concomitant]
     Active Substance: ONDANSETRON
     Dosage: 8 MG, PRN (1 IN 1 AS REQUIRED)
     Route: 048
     Dates: start: 20180221
  27. LOPERAMIDE [Concomitant]
     Active Substance: LOPERAMIDE
     Dosage: 2 MG, 1 IN 1 AS REQUIRED
     Route: 048
     Dates: start: 20190205
  28. ENOXAPARIN [Concomitant]
     Active Substance: ENOXAPARIN
     Dosage: 40 MG, QD
     Route: 058
     Dates: start: 20190222
  29. KETOROLAC [Concomitant]
     Active Substance: KETOROLAC TROMETHAMINE
     Dosage: 30 MG, PRN
     Route: 042
     Dates: start: 20190309, end: 20190309
  30. COBIMETINIB. [Suspect]
     Active Substance: COBIMETINIB
     Dosage: DATE OF MOST RECENT DOSE PRIOR TO SAE ONSET:20/FEB/2019 60 MG,FROM DAYS 1 TO 21 OF EACH 28 DAY CYCLE
     Route: 048
     Dates: start: 20190205
  31. DOCUSATE SODIUM. [Concomitant]
     Active Substance: DOCUSATE SODIUM
     Dosage: 100 MG, 1 IN 1 AS REQUIRED
     Route: 048
     Dates: start: 20180221
  32. LORAZEPAM. [Concomitant]
     Active Substance: LORAZEPAM
     Dosage: 0.5 MG, 1 IN 1 AS REQUIRED
     Route: 048
     Dates: start: 20190205
  33. PARACETAMOL [Concomitant]
     Active Substance: ACETAMINOPHEN
     Dosage: 650 MG, QD
     Route: 048
     Dates: start: 20190220, end: 20190220
  34. ACLOVATE [Concomitant]
     Active Substance: ALCLOMETASONE DIPROPIONATE
     Dosage: 0.05 %, BID
     Route: 061
     Dates: start: 20190219
  35. POTASSIUM CHLORIDE. [Concomitant]
     Active Substance: POTASSIUM CHLORIDE
     Dosage: 40 OTHER QD
     Route: 042
     Dates: start: 20190308, end: 20190308
  36. CHLORASEPTIC SORE THROAT [Concomitant]
     Active Substance: PHENOL
     Dosage: 1.4 %, PRN
     Route: 048
     Dates: start: 20190308, end: 20190310

REACTIONS (6)
  - Small intestinal obstruction [Fatal]
  - Syncope [Recovering/Resolving]
  - Cholelithiasis [Recovered/Resolved]
  - Ischaemic stroke [Not Recovered/Not Resolved]
  - Diarrhoea [Not Recovered/Not Resolved]
  - Gastrointestinal haemorrhage [Recovered/Resolved]

NARRATIVE: CASE EVENT DATE: 20190219
